FAERS Safety Report 6635700-6 (Version None)
Quarter: 2010Q1

REPORT INFORMATION
  Report Type: 
  Country: None (occurrence: None)
  Receive Date: 20100312
  Receipt Date: 20100312
  Transmission Date: 20100710
  Serious: No
  Sender: FDA-Public Use
  Company Number: None

PATIENT
  Age: 46 Year
  Sex: Female
  Weight: 78.0187 kg

DRUGS (7)
  1. DIVALPROEX EXTENDED-RELEASE [Suspect]
     Dosage: 500 MG PO
     Route: 048
  2. MIDODRINE HYDROCHLORIDE [Concomitant]
  3. OMEPRAZOLE [Concomitant]
  4. DOCUSATE SODIUM [Concomitant]
  5. HYDROXYZINE PAM [Concomitant]
  6. IBUPROFEN [Concomitant]
  7. MIDODRINE HYDROCHLORIDE [Concomitant]

REACTIONS (2)
  - DIZZINESS [None]
  - HYPOAESTHESIA [None]
